FAERS Safety Report 9334818 (Version 1)
Quarter: 2013Q2

REPORT INFORMATION
  Report Type: Spontaneous
  Country: US (occurrence: US)
  Receive Date: 20130606
  Receipt Date: 20130606
  Transmission Date: 20140414
  Serious: No
  Sender: FDA-Public Use
  Company Number: US-AMGEN-USASP2013026873

PATIENT
  Age: 76 Year
  Sex: Female
  Weight: 47.17 kg

DRUGS (10)
  1. PROLIA [Suspect]
     Indication: OSTEOPOROSIS POSTMENOPAUSAL
     Dosage: 60 MG/ML, Q6MO
     Route: 058
     Dates: start: 201103
  2. PROLIA [Suspect]
     Indication: OSTEOPENIA
  3. VITAMINS NOS [Concomitant]
  4. ASPIRIN [Concomitant]
     Dosage: 81 MG, UNK
  5. OMEGA 3                            /01334101/ [Concomitant]
  6. VIT D3 [Concomitant]
  7. GLUCOSAMINE SULFATE [Concomitant]
  8. LUTEIN                             /01638501/ [Concomitant]
  9. CITRACAL                           /00751520/ [Concomitant]
  10. VIT B 12 [Concomitant]
     Route: 060

REACTIONS (13)
  - Ear congestion [Recovered/Resolved]
  - Ear pain [Recovered/Resolved]
  - Onychalgia [Unknown]
  - Inflammatory pain [Unknown]
  - Toothache [Recovered/Resolved]
  - Paranasal sinus hypersecretion [Recovered/Resolved]
  - Tendon pain [Recovering/Resolving]
  - Ingrowing nail [Not Recovered/Not Resolved]
  - Cerumen impaction [Recovered/Resolved]
  - Pain in jaw [Recovered/Resolved]
  - Upper respiratory tract infection [Recovered/Resolved]
  - Myalgia [Recovering/Resolving]
  - Pain in extremity [Not Recovered/Not Resolved]
